FAERS Safety Report 24229793 (Version 2)
Quarter: 2024Q3

REPORT INFORMATION
  Report Type: Report from Study
  Country: US (occurrence: US)
  Receive Date: 20240820
  Receipt Date: 20240827
  Transmission Date: 20241017
  Serious: Yes (Hospitalization, Other)
  Sender: ABBVIE
  Company Number: US-ABBVIE-5884768

PATIENT
  Sex: Male

DRUGS (1)
  1. VENCLEXTA [Suspect]
     Active Substance: VENETOCLAX
     Indication: Acute myeloid leukaemia
     Dosage: STRENGTH:100 MG?ON DAYS 1 THROUGH 21 OF EACH 28 DAY CYCLE
     Route: 048

REACTIONS (5)
  - Diabetes mellitus [Unknown]
  - Blood pressure abnormal [Unknown]
  - Neoplasm malignant [Unknown]
  - Blood cholesterol increased [Unknown]
  - Off label use [Unknown]
